FAERS Safety Report 8962141 (Version 4)
Quarter: 2014Q3

REPORT INFORMATION
  Report Type: Spontaneous
  Country: US (occurrence: US)
  Receive Date: 20121212
  Receipt Date: 20140916
  Transmission Date: 20150326
  Serious: Yes (Death, Life-Threatening, Hospitalization, Disabling, Other)
  Sender: FDA-Public Use
  Company Number: US-009507513-1212USA004613

PATIENT
  Sex: Female
  Weight: 101.13 kg

DRUGS (4)
  1. JANUVIA [Suspect]
     Active Substance: SITAGLIPTIN PHOSPHATE
     Indication: TYPE 2 DIABETES MELLITUS
     Dosage: 50 MG, QD
     Route: 048
     Dates: start: 20090116, end: 20091229
  2. JANUMET [Suspect]
     Active Substance: METFORMIN HYDROCHLORIDE\SITAGLIPTIN PHOSPHATE
     Indication: TYPE 2 DIABETES MELLITUS
     Dosage: 50-1,000MG, BID
     Route: 048
     Dates: start: 20090127, end: 20101107
  3. VICTOZA [Suspect]
     Active Substance: LIRAGLUTIDE
     Indication: TYPE 2 DIABETES MELLITUS
     Dosage: 18MG/3ML, QD
     Route: 058
     Dates: start: 20100121, end: 20100220
  4. BYETTA [Suspect]
     Active Substance: EXENATIDE
     Indication: TYPE 2 DIABETES MELLITUS
     Dosage: 10 MICROGRAM, BID
     Route: 058
     Dates: start: 20061002, end: 20081105

REACTIONS (8)
  - Malignant ascites [Fatal]
  - Pancreaticoduodenectomy [Unknown]
  - Pancreatitis [Unknown]
  - Hypertension [Unknown]
  - Pancreatic carcinoma metastatic [Fatal]
  - Cholecystectomy [Unknown]
  - Hypothyroidism [Unknown]
  - Liver disorder [Unknown]

NARRATIVE: CASE EVENT DATE: 2012
